FAERS Safety Report 10696884 (Version 1)
Quarter: 2015Q1

REPORT INFORMATION
  Report Type: Spontaneous
  Country: US (occurrence: US)
  Receive Date: 20150108
  Receipt Date: 20150108
  Transmission Date: 20150721
  Serious: Yes (Other)
  Sender: FDA-Public Use
  Company Number: US-CIPLA LTD.-2014US03007

PATIENT

DRUGS (7)
  1. CETUXIMAB [Suspect]
     Active Substance: CETUXIMAB
     Indication: HEAD AND NECK CANCER
     Dosage: LOADING DOSE OF 400 MG/M2
  2. CETUXIMAB [Suspect]
     Active Substance: CETUXIMAB
     Dosage: 250 MG/M2 ON DAYS 8, 15, AND 22 OF EACH 28-DAY CYCLE
  3. EVEROLIMUS [Suspect]
     Active Substance: EVEROLIMUS
     Indication: HEAD AND NECK CANCER
     Dosage: 2.5 MG, QD
  4. EVEROLIMUS [Suspect]
     Active Substance: EVEROLIMUS
     Dosage: 5.0 MG, QD
  5. CARBOPLATIN. [Suspect]
     Active Substance: CARBOPLATIN
     Indication: HEAD AND NECK CANCER
     Dosage: AUC 2 MG/ML/MIN ON DAYS 1, 8, AND 15 OF EACH 28-DAY CYCLE FOR A TOTAL OF 4 CYCLES
  6. EVEROLIMUS [Suspect]
     Active Substance: EVEROLIMUS
     Dosage: 7.5 MG, QD
  7. EVEROLIMUS [Suspect]
     Active Substance: EVEROLIMUS
     Dosage: 10 MG, QD

REACTIONS (1)
  - Pneumonia aspiration [Unknown]
